FAERS Safety Report 24647869 (Version 1)
Quarter: 2024Q4

REPORT INFORMATION
  Report Type: Spontaneous
  Country: US (occurrence: None)
  Receive Date: 20241121
  Receipt Date: 20241121
  Transmission Date: 20250115
  Serious: Yes (Life-Threatening)
  Sender: Public
  Company Number: None

PATIENT
  Age: 27 Year
  Sex: Female
  Weight: 89 kg

DRUGS (2)
  1. BELIMUMAB [Suspect]
     Active Substance: BELIMUMAB
     Indication: Systemic lupus erythematosus
     Dosage: OTHER FREQUENCY : UNKNOWN;?
     Route: 042
  2. FLONASE [Suspect]
     Active Substance: FLUTICASONE PROPIONATE

REACTIONS (6)
  - Angioedema [None]
  - Facial pain [None]
  - Rhinalgia [None]
  - Sinus pain [None]
  - Paranasal sinus discomfort [None]
  - Erythema [None]

NARRATIVE: CASE EVENT DATE: 20241007
